FAERS Safety Report 17412256 (Version 1)
Quarter: 2020Q1

REPORT INFORMATION
  Report Type: Spontaneous
  Country: US (occurrence: US)
  Receive Date: 20200212
  Receipt Date: 20200212
  Transmission Date: 20200409
  Serious: No
  Sender: FDA-Public Use
  Company Number: None

PATIENT
  Age: 56 Year
  Sex: Male
  Weight: 135 kg

DRUGS (1)
  1. THERATEARS EXTRA [Suspect]
     Active Substance: CARBOXYMETHYLCELLULOSE SODIUM
     Indication: DRY EYE
     Dosage: ?          QUANTITY:2 DROP(S);?
     Route: 047
     Dates: start: 20200112, end: 20200207

REACTIONS (5)
  - Product contamination microbial [None]
  - Recalled product [None]
  - Eye irritation [None]
  - Eye pruritus [None]
  - Eye infection [None]

NARRATIVE: CASE EVENT DATE: 20200112
